FAERS Safety Report 7605235-2 (Version None)
Quarter: 2011Q3

REPORT INFORMATION
  Report Type: 
  Country: None (occurrence: None)
  Receive Date: 20110713
  Receipt Date: 20110629
  Transmission Date: 20111222
  Serious: Yes (Other)
  Sender: FDA-Public Use
  Company Number: US-RANBAXY-2011RR-45937

PATIENT
  Sex: Female

DRUGS (3)
  1. XYNTABALIN [Suspect]
     Indication: ROCKY MOUNTAIN SPOTTED FEVER
     Dosage: UNK
     Route: 042
     Dates: start: 20070101, end: 20070101
  2. DOXYCYCLINE [Suspect]
     Indication: ROCKY MOUNTAIN SPOTTED FEVER
     Dosage: UNK
     Route: 065
     Dates: start: 20070101, end: 20070101
  3. LEVAQUIN [Suspect]
     Indication: ROCKY MOUNTAIN SPOTTED FEVER
     Dosage: 500 MG, QD
     Route: 048
     Dates: start: 20070101, end: 20070101

REACTIONS (5)
  - CENTRAL NERVOUS SYSTEM LESION [None]
  - BONE PAIN [None]
  - MYALGIA [None]
  - LYME DISEASE [None]
  - ARTHRALGIA [None]
